FAERS Safety Report 9411385 (Version 2)
Quarter: 2013Q3

REPORT INFORMATION
  Report Type: Spontaneous
  Country: GB (occurrence: GB)
  Receive Date: 20130722
  Receipt Date: 20130807
  Transmission Date: 20140515
  Serious: Yes (Hospitalization)
  Sender: FDA-Public Use
  Company Number: PHHY2013GB074976

PATIENT
  Age: 61 Year
  Sex: Male

DRUGS (1)
  1. CO-AMOXICLAV [Suspect]
     Indication: PROPHYLAXIS
     Dosage: 1 DF, TID
     Dates: start: 20130506

REACTIONS (8)
  - Gastrooesophageal reflux disease [Unknown]
  - Faeces pale [Unknown]
  - Fatigue [Unknown]
  - Abnormal faeces [Unknown]
  - Chromaturia [Unknown]
  - Eye colour change [Unknown]
  - Jaundice [Not Recovered/Not Resolved]
  - Diarrhoea [Unknown]
